APPROVED DRUG PRODUCT: LUPANETA PACK
Active Ingredient: LEUPROLIDE ACETATE; NORETHINDRONE ACETATE
Strength: 11.25MG/VIAL,N/A;N/A,5MG
Dosage Form/Route: INJECTABLE, TABLET;INTRAMUSCULAR, ORAL
Application: N203696 | Product #002
Applicant: ABBVIE ENDOCRINE INC
Approved: Dec 14, 2012 | RLD: Yes | RS: No | Type: DISCN